FAERS Safety Report 7007220-0 (Version None)
Quarter: 2010Q3

REPORT INFORMATION
  Report Type: 
  Country: None (occurrence: None)
  Receive Date: 20100916
  Receipt Date: 20100315
  Transmission Date: 20110219
  Serious: Yes (Hospitalization, Other)
  Sender: FDA-Public Use
  Company Number: 2010SP016190

PATIENT
  Age: 37 Year
  Sex: Female
  Weight: 112.9457 kg

DRUGS (4)
  1. NUVARING [Suspect]
     Indication: CONTRACEPTION
     Dates: start: 20080201, end: 20080318
  2. NUVARING [Suspect]
     Indication: CONTRACEPTION
     Dates: start: 20040101
  3. NUVARING [Suspect]
     Indication: CONTRACEPTION
     Dates: start: 20050101
  4. NUVARING [Suspect]
     Indication: CONTRACEPTION
     Dates: start: 20060101

REACTIONS (9)
  - ABORTION SPONTANEOUS [None]
  - DEEP VEIN THROMBOSIS [None]
  - DRUG EXPOSURE DURING PREGNANCY [None]
  - HEART RATE IRREGULAR [None]
  - HYPERCOAGULATION [None]
  - MULTIPLE INJURIES [None]
  - PALPITATIONS [None]
  - PREGNANCY [None]
  - PULMONARY EMBOLISM [None]
